FAERS Safety Report 6749356-5 (Version None)
Quarter: 2010Q2

REPORT INFORMATION
  Report Type: 
  Country: None (occurrence: None)
  Receive Date: 20100601
  Receipt Date: 20100521
  Transmission Date: 20101027
  Serious: Yes (Death, Other)
  Sender: FDA-Public Use
  Company Number: US-ROCHE-703067

PATIENT
  Sex: Female
  Weight: 47.2 kg

DRUGS (6)
  1. CAPECITABINE [Suspect]
     Dosage: 2 WEEKS ON, 1 WEEK OFF
     Route: 048
     Dates: start: 20090925, end: 20100114
  2. BEVACIZUMAB [Suspect]
     Route: 042
     Dates: start: 20090413, end: 20090821
  3. DILAUDID [Concomitant]
     Indication: PAIN
     Dosage: FREQUENCY REPORTED AS: EVERY 2-3, STOP DATE: 2010
     Route: 048
     Dates: start: 20060101
  4. LORAZEPAM [Concomitant]
     Dosage: STOP DATE: 2010
     Route: 048
     Dates: start: 20060101
  5. PREDNISONE TAB [Concomitant]
     Route: 048
     Dates: start: 20091201, end: 20100101
  6. DOXIL [Concomitant]
     Route: 042

REACTIONS (2)
  - MALIGNANT NEOPLASM PROGRESSION [None]
  - SKIN ULCER [None]
